FAERS Safety Report 24173750 (Version 1)
Quarter: 2024Q3

REPORT INFORMATION
  Report Type: Report from Study
  Country: US (occurrence: US)
  Receive Date: 20240805
  Receipt Date: 20240805
  Transmission Date: 20241017
  Serious: Yes (Hospitalization)
  Sender: SERVIER
  Company Number: US-SERVIER-S24009408

PATIENT

DRUGS (2)
  1. CALASPARGASE PEGOL [Suspect]
     Active Substance: CALASPARGASE PEGOL
     Indication: Ductal adenocarcinoma of pancreas
     Dosage: 1000 U/M2, EVERY 3 WEEKS
     Route: 042
     Dates: start: 20240703
  2. COBIMETINIB [Suspect]
     Active Substance: COBIMETINIB
     Indication: Ductal adenocarcinoma of pancreas
     Dosage: 60 MG, QD, D1 - D14 OF A 21-DAY CYCLE
     Route: 048
     Dates: start: 20240703

REACTIONS (2)
  - Sepsis [Unknown]
  - Liver abscess [Unknown]

NARRATIVE: CASE EVENT DATE: 20240723
